FAERS Safety Report 4876786-9 (Version None)
Quarter: 2006Q1

REPORT INFORMATION
  Report Type: 
  Country: None (occurrence: None)
  Receive Date: 20060110
  Receipt Date: 20051214
  Transmission Date: 20060701
  Serious: Yes (Hospitalization)
  Sender: FDA-Public Use
  Company Number: US-MERCK-0512USA02384

PATIENT
  Age: 71 Year
  Sex: Female
  Weight: 77 kg

DRUGS (1)
  1. VIOXX [Suspect]
     Indication: KNEE ARTHROPLASTY
     Route: 048
     Dates: start: 20010626, end: 20010925

REACTIONS (5)
  - ARTHROPATHY [None]
  - CAROTID ARTERY OCCLUSION [None]
  - CEREBROVASCULAR ACCIDENT [None]
  - PNEUMONIA [None]
  - TRANSIENT ISCHAEMIC ATTACK [None]
